FAERS Safety Report 6650400-4 (Version None)
Quarter: 2010Q1

REPORT INFORMATION
  Report Type: 
  Country: None (occurrence: None)
  Receive Date: 20100322
  Receipt Date: 20100305
  Transmission Date: 20100710
  Serious: Yes (Hospitalization)
  Sender: FDA-Public Use
  Company Number: 007674

PATIENT
  Age: 77 Year
  Sex: Male

DRUGS (1)
  1. GALENIC                       /ENALAPRIL/HYDROCHLOROTHIAZIDE/ [Suspect]

REACTIONS (8)
  - BLOOD PRESSURE INADEQUATELY CONTROLLED [None]
  - DRUG INEFFECTIVE [None]
  - DYSARTHRIA [None]
  - EMBOLIC STROKE [None]
  - HEART RATE IRREGULAR [None]
  - HEMIANOPIA HOMONYMOUS [None]
  - HYPOAESTHESIA [None]
  - MUSCULAR WEAKNESS [None]
